FAERS Safety Report 4361185-9 (Version None)
Quarter: 2004Q2

REPORT INFORMATION
  Report Type: 
  Country: None (occurrence: None)
  Receive Date: 20040507
  Receipt Date: 20040301
  Transmission Date: 20050107
  Serious: Yes (Other)
  Sender: FDA-Public Use
  Company Number: PHEH2004US02555

PATIENT
  Sex: Female

DRUGS (1)
  1. TEGRETOL [Suspect]
     Dosage: ORAL
     Route: 048
     Dates: start: 20020201

REACTIONS (2)
  - EMOTIONAL DISTRESS [None]
  - LIVER DISORDER [None]
